FAERS Safety Report 24863971 (Version 1)
Quarter: 2025Q1

REPORT INFORMATION
  Report Type: Spontaneous
  Country: PL (occurrence: PL)
  Receive Date: 20250120
  Receipt Date: 20250120
  Transmission Date: 20250409
  Serious: Yes (Hospitalization, Other)
  Sender: TEVA
  Company Number: PL-EMA-DD-20210325-jain_h1-163704

PATIENT
  Age: 74 Year
  Sex: Male

DRUGS (5)
  1. METFORMIN [Suspect]
     Active Substance: METFORMIN HYDROCHLORIDE
     Indication: Product used for unknown indication
     Route: 065
  2. ASPIRIN [Suspect]
     Active Substance: ASPIRIN
     Indication: Product used for unknown indication
     Route: 065
  3. TELMISARTAN [Suspect]
     Active Substance: TELMISARTAN
     Indication: Product used for unknown indication
     Route: 065
  4. METOPROLOL [Suspect]
     Active Substance: METOPROLOL
     Indication: Product used for unknown indication
     Route: 065
  5. ROSUVASTATIN [Suspect]
     Active Substance: ROSUVASTATIN
     Indication: Product used for unknown indication
     Route: 065

REACTIONS (7)
  - Exercise tolerance decreased [Not Recovered/Not Resolved]
  - Restlessness [Unknown]
  - Cardiac failure chronic [Unknown]
  - Arrhythmia [Unknown]
  - Dyspnoea [Unknown]
  - Circulatory collapse [Recovering/Resolving]
  - Cardiac failure chronic [Unknown]

NARRATIVE: CASE EVENT DATE: 20201201
